FAERS Safety Report 6162626-7 (Version None)
Quarter: 2009Q2

REPORT INFORMATION
  Report Type: 
  Country: None (occurrence: None)
  Receive Date: 20090417
  Receipt Date: 20090406
  Transmission Date: 20091009
  Serious: Yes (Death, Life-Threatening)
  Sender: FDA-Public Use
  Company Number: RU-JNJFOC-2009041173

PATIENT
  Age: 71 Year
  Sex: Female

DRUGS (5)
  1. DECITABINE (DECITABINE) LYOPHILIZED POWDER [Suspect]
     Indication: ACUTE MYELOID LEUKAEMIA
     Dosage: 20 MG/M2, 1 IN 1 DAY, INTRAVENOUS, 20 MG/M2, 1 IN 1 DAY, INTRAVENOUS
     Route: 042
     Dates: end: 20090327
  2. DECITABINE (DECITABINE) LYOPHILIZED POWDER [Suspect]
     Indication: ACUTE MYELOID LEUKAEMIA
     Dosage: 20 MG/M2, 1 IN 1 DAY, INTRAVENOUS, 20 MG/M2, 1 IN 1 DAY, INTRAVENOUS
     Route: 042
     Dates: start: 20081222
  3. ONDANSETRON (ONDANSETRON) SOLUTION [Concomitant]
  4. ALBUMIN (ALBUMIN NORMAL HUMAN SERUM) SOLUTION [Concomitant]
  5. RINGER'S SOLUTION (SODIUM CHLORIDE COMPOUND INJECTION) SOLUTION [Concomitant]

REACTIONS (2)
  - FEBRILE NEUTROPENIA [None]
  - MULTI-ORGAN FAILURE [None]
